FAERS Safety Report 15515455 (Version 2)
Quarter: 2018Q4

REPORT INFORMATION
  Report Type: Spontaneous
  Country: US (occurrence: US)
  Receive Date: 20181017
  Receipt Date: 20181114
  Transmission Date: 20190205
  Serious: No
  Sender: FDA-Public Use
  Company Number: US-ASTRAZENECA-2018SF18064

PATIENT
  Age: 28003 Day
  Sex: Female
  Weight: 61.2 kg

DRUGS (3)
  1. SPIRIVA [Concomitant]
     Active Substance: TIOTROPIUM BROMIDE MONOHYDRATE
     Indication: CHRONIC OBSTRUCTIVE PULMONARY DISEASE
     Route: 055
  2. SYMBICORT [Suspect]
     Active Substance: BUDESONIDE\FORMOTEROL FUMARATE DIHYDRATE
     Indication: CHRONIC OBSTRUCTIVE PULMONARY DISEASE
     Dosage: 80/4.5 MCG 2 PUFFS TWICE A DAY
     Route: 055
     Dates: start: 20180807, end: 201810
  3. SYMBICORT [Suspect]
     Active Substance: BUDESONIDE\FORMOTEROL FUMARATE DIHYDRATE
     Indication: CHRONIC OBSTRUCTIVE PULMONARY DISEASE
     Dosage: 80/4.5, 1 PUFF TWO TIMES A DAY
     Route: 055
     Dates: start: 20181008

REACTIONS (9)
  - Off label use [Not Recovered/Not Resolved]
  - Device malfunction [Unknown]
  - Intentional device misuse [Recovered/Resolved]
  - Product use issue [Not Recovered/Not Resolved]
  - Muscle spasms [Not Recovered/Not Resolved]
  - Product dose omission [Recovered/Resolved]
  - Sinusitis [Recovered/Resolved]
  - Tooth disorder [Unknown]
  - Dysphonia [Not Recovered/Not Resolved]

NARRATIVE: CASE EVENT DATE: 20180807
